FAERS Safety Report 4996760-1 (Version None)
Quarter: 2006Q2

REPORT INFORMATION
  Report Type: 
  Country: None (occurrence: None)
  Receive Date: 20060508
  Receipt Date: 20060508
  Transmission Date: 20061013
  Serious: Yes (Hospitalization, Other)
  Sender: FDA-Public Use
  Company Number: None

PATIENT
  Age: 48 Year
  Sex: Female
  Weight: 63.5036 kg

DRUGS (2)
  1. LEVAQUIN [Suspect]
     Indication: INFLAMMATION
     Dosage: 750 MG ONE A DAY CUTANEOUS
     Route: 003
     Dates: start: 20060414, end: 20060516
  2. LEVAQUIN [Suspect]
     Indication: MASTOID DISORDER
     Dosage: 750 MG ONE A DAY CUTANEOUS
     Route: 003
     Dates: start: 20060414, end: 20060516

REACTIONS (18)
  - ANGER [None]
  - ARTHROPATHY [None]
  - ASTHENIA [None]
  - BONE DISORDER [None]
  - BURNING SENSATION [None]
  - DIZZINESS [None]
  - FATIGUE [None]
  - FEAR [None]
  - FEELING ABNORMAL [None]
  - HEART RATE INCREASED [None]
  - IMPAIRED WORK ABILITY [None]
  - INSOMNIA [None]
  - LUNG DISORDER [None]
  - OEDEMA PERIPHERAL [None]
  - PAIN [None]
  - RESPIRATORY DISORDER [None]
  - SPINAL DISORDER [None]
  - WEIGHT DECREASED [None]
